FAERS Safety Report 22214843 (Version 1)
Quarter: 2023Q2

REPORT INFORMATION
  Report Type: Spontaneous
  Country: US (occurrence: US)
  Receive Date: 20230415
  Receipt Date: 20230415
  Transmission Date: 20230721
  Serious: No
  Sender: FDA-Public Use
  Company Number: US-ABBVIE-4700412

PATIENT
  Age: 57 Year
  Sex: Female

DRUGS (10)
  1. SYNTHROID [Suspect]
     Active Substance: LEVOTHYROXINE SODIUM
     Indication: Product used for unknown indication
     Route: 048
     Dates: start: 20180101
  2. ACYCLOVIR [Concomitant]
     Active Substance: ACYCLOVIR
     Indication: Product used for unknown indication
     Dates: start: 20120101
  3. DOXYCYCLINE [Concomitant]
     Active Substance: DOXYCYCLINE
     Indication: Product used for unknown indication
     Dates: start: 20230313
  4. PFIZER-BIONTECH COVID-19 VACCINE [Suspect]
     Active Substance: TOZINAMERAN
     Indication: COVID-19 immunisation
     Dosage: DOSE NUMBER: 2 BATCH/LOT NO: ER8737 LOCATION OF INJECTION: ARM LEFT
     Route: 030
     Dates: start: 20210415, end: 20210415
  5. PFIZER-BIONTECH COVID-19 VACCINE [Suspect]
     Active Substance: TOZINAMERAN
     Indication: COVID-19 immunisation
     Dosage: DOSE NUMBER: 1 BATCH/LOT NO: EP7534 LOCATION OF INJECTION: ARM LEFT
     Route: 030
     Dates: start: 20210325, end: 20210325
  6. PFIZER-BIONTECH COVID-19 VACCINE [Suspect]
     Active Substance: TOZINAMERAN
     Indication: COVID-19 immunisation
     Dosage: BATCH/LOT NO: FE3590 LOCATION OF INJECTION: ARM LEFT
     Route: 030
     Dates: start: 20211102, end: 20211102
  7. PFIZER-BIONTECH COVID-19 VACCINE [Suspect]
     Active Substance: TOZINAMERAN
     Indication: COVID-19 immunisation
     Dosage: BATCH/LOT NO: UNKNOWN. MISPLACED/DISCARDED LOCATION OF INJECTION: ARM LEFT
     Route: 030
     Dates: start: 20220628, end: 20220628
  8. OMEPRAZOLE [Concomitant]
     Active Substance: OMEPRAZOLE
     Indication: Product used for unknown indication
  9. BIAXIN [Suspect]
     Active Substance: CLARITHROMYCIN
     Indication: Product used for unknown indication
     Route: 030
  10. PAXLOVID [Concomitant]
     Active Substance: NIRMATRELVIR\RITONAVIR
     Indication: Product used for unknown indication

REACTIONS (6)
  - Chest pain [Not Recovered/Not Resolved]
  - Sneezing [Unknown]
  - Pneumonia [Unknown]
  - SARS-CoV-2 test positive [Unknown]
  - Rhinorrhoea [Unknown]
  - Nasal congestion [Unknown]

NARRATIVE: CASE EVENT DATE: 20230228
